FAERS Safety Report 4264552-7 (Version None)
Quarter: 2004Q1

REPORT INFORMATION
  Report Type: 
  Country: None (occurrence: None)
  Receive Date: 20040102
  Receipt Date: 20031219
  Transmission Date: 20041129
  Serious: Yes (Hospitalization, Other)
  Sender: FDA-Public Use
  Company Number: USA030227852

PATIENT
  Age: 76 Year
  Sex: Female
  Weight: 90 kg

DRUGS (16)
  1. FORTEO [Suspect]
     Indication: OSTEOPOROSIS
     Dosage: 20 UG/DAY
     Dates: start: 20030124
  2. ACIPHEX [Concomitant]
  3. ADVAIR DISKUS 250/50 [Concomitant]
  4. ALLEGRA [Concomitant]
  5. ASPIRIN [Concomitant]
  6. DILANTIN [Concomitant]
  7. GLUCOSAMINE [Concomitant]
  8. LASIX [Concomitant]
  9. LEVOTHYROXINE SODIUM [Concomitant]
  10. PRIMIDONE [Concomitant]
  11. POTASSIUM CHLORIDE [Concomitant]
  12. VITAMIN C [Concomitant]
  13. VITAMIN D [Concomitant]
  14. ZESTRIL [Concomitant]
  15. CALCIUM WITH VITAMIN D [Concomitant]
  16. TYLENOL [Concomitant]

REACTIONS (11)
  - CHEST DISCOMFORT [None]
  - CHRONIC OBSTRUCTIVE AIRWAYS DISEASE [None]
  - FALL [None]
  - INJECTION SITE HAEMORRHAGE [None]
  - JOINT INJURY [None]
  - JOINT SPRAIN [None]
  - MUSCULAR WEAKNESS [None]
  - PHARMACEUTICAL PRODUCT COMPLAINT [None]
  - PNEUMONIA [None]
  - SLUGGISHNESS [None]
  - WEIGHT INCREASED [None]
